FAERS Safety Report 10418682 (Version 1)
Quarter: 2014Q3

REPORT INFORMATION
  Report Type: Spontaneous
  Country: US (occurrence: US)
  Receive Date: 20140829
  Receipt Date: 20140829
  Transmission Date: 20150326
  Serious: Yes (Hospitalization)
  Sender: FDA-Public Use
  Company Number: US-PFIZER INC-2014237117

PATIENT
  Age: 49 Year
  Sex: Male

DRUGS (1)
  1. SUTENT [Suspect]
     Active Substance: SUNITINIB MALATE
     Indication: RENAL CANCER
     Dosage: 50 MG, CYCLIC (14 DAYS ON, 7 OFF)
     Dates: start: 20140804

REACTIONS (3)
  - Cardiac disorder [Unknown]
  - Mouth ulceration [Not Recovered/Not Resolved]
  - Oral pain [Not Recovered/Not Resolved]
